FAERS Safety Report 24348289 (Version 1)
Quarter: 2024Q3

REPORT INFORMATION
  Report Type: Spontaneous
  Country: CN (occurrence: None)
  Receive Date: 20240923
  Receipt Date: 20240923
  Transmission Date: 20241016
  Serious: Yes (Hospitalization)
  Sender: Alvotech
  Company Number: CN-ALVOTECHPMS-2024-ALVOTECHPMS-002312

PATIENT
  Age: 12 Year
  Sex: Male

DRUGS (3)
  1. ADALIMUMAB [Suspect]
     Active Substance: ADALIMUMAB
     Indication: Juvenile idiopathic arthritis
     Dosage: A TOTAL OF THREE TIMES BI-WEEKLY??BI-WEEKLY
     Route: 058
     Dates: start: 202403
  2. NAPROXEN [Concomitant]
     Active Substance: NAPROXEN
     Indication: Juvenile idiopathic arthritis
     Dosage: 200  MG TWICE DAILY
  3. SULFASALAZINE [Concomitant]
     Active Substance: SULFASALAZINE
     Indication: Juvenile idiopathic arthritis
     Dosage: 1 G TWICE DAILY

REACTIONS (1)
  - Mania [Recovering/Resolving]
